FAERS Safety Report 5627045-8 (Version None)
Quarter: 2008Q1

REPORT INFORMATION
  Report Type: 
  Country: None (occurrence: None)
  Receive Date: 20080117
  Receipt Date: 20070522
  Transmission Date: 20080703
  Serious: Yes (Other)
  Sender: FDA-Public Use
  Company Number: E2020-01274-SPO-US

PATIENT
  Age: 83 Year
  Sex: Male

DRUGS (4)
  1. ARICEPT [Suspect]
     Indication: DEMENTIA ALZHEIMER'S TYPE
     Dosage: 10 MG, 1 IN 1 D, ORAL ;5 MG 1 IN 1 D, ORAL
     Route: 048
     Dates: end: 20070501
  2. ARICEPT [Suspect]
     Indication: DEMENTIA ALZHEIMER'S TYPE
     Dosage: 10 MG, 1 IN 1 D, ORAL ;5 MG 1 IN 1 D, ORAL
     Route: 048
     Dates: start: 20070501
  3. ASPIRIN [Concomitant]
  4. NAPROSYN [Concomitant]

REACTIONS (3)
  - COGNITIVE DISORDER [None]
  - CONVULSION [None]
  - DYSPHAGIA [None]
